FAERS Safety Report 5490828-1 (Version None)
Quarter: 2007Q4

REPORT INFORMATION
  Report Type: 
  Country: None (occurrence: None)
  Receive Date: 20071019
  Receipt Date: 20071005
  Transmission Date: 20080405
  Serious: Yes (Hospitalization, Other)
  Sender: FDA-Public Use
  Company Number: JP-ROCHE-479727

PATIENT
  Age: 59 Year
  Sex: Female
  Weight: 50 kg

DRUGS (6)
  1. PEGASYS [Suspect]
     Route: 058
     Dates: start: 20060802, end: 20060830
  2. PEGASYS [Suspect]
     Dosage: DOSAGE INCREASED.
     Route: 058
     Dates: start: 20060913, end: 20061101
  3. PEGASYS [Suspect]
     Route: 058
     Dates: start: 20061115, end: 20061227
  4. URSO 250 [Concomitant]
     Route: 048
     Dates: start: 20030224
  5. GLYCYRON [Concomitant]
     Route: 048
     Dates: start: 20060324
  6. AMOBAN [Concomitant]
     Route: 048

REACTIONS (3)
  - INTERSTITIAL LUNG DISEASE [None]
  - PLEURAL EFFUSION [None]
  - PLEURISY [None]
